FAERS Safety Report 8200080-1 (Version None)
Quarter: 2012Q1

REPORT INFORMATION
  Report Type: 
  Country: None (occurrence: None)
  Receive Date: 20120312
  Receipt Date: 20120307
  Transmission Date: 20120608
  Serious: Yes (Other)
  Sender: FDA-Public Use
  Company Number: US-SHIRE-ALL1-2012-01289

PATIENT
  Age: 21 Year
  Sex: Male

DRUGS (2)
  1. ELAPRASE [Suspect]
     Indication: MUCOPOLYSACCHARIDOSIS II
     Dosage: UNK UNK, 1X/WEEK
     Route: 041
  2. ELAPRASE [Suspect]
     Dosage: 33 MG, 1X/WEEK
     Route: 041
     Dates: start: 20111001

REACTIONS (6)
  - WEIGHT INCREASED [None]
  - FATIGUE [None]
  - GENERALISED ERYTHEMA [None]
  - LOCAL SWELLING [None]
  - URTICARIA [None]
  - HEADACHE [None]
